FAERS Safety Report 6216137-0 (Version None)
Quarter: 2009Q2

REPORT INFORMATION
  Report Type: 
  Country: None (occurrence: None)
  Receive Date: 20090605
  Receipt Date: 20090527
  Transmission Date: 20091009
  Serious: Yes (Hospitalization)
  Sender: FDA-Public Use
  Company Number: GB-CELGENEUS-167-C5013-09051746

PATIENT
  Sex: Male
  Weight: 72.2 kg

DRUGS (8)
  1. CC-5013 [Suspect]
     Route: 048
     Dates: start: 20090511
  2. FOLIC ACID [Concomitant]
     Indication: DRUG USE FOR UNKNOWN INDICATION
     Route: 065
  3. AZITHROMYCIN [Concomitant]
     Indication: DRUG USE FOR UNKNOWN INDICATION
     Route: 065
  4. GLICLAZIDE [Concomitant]
     Indication: DRUG USE FOR UNKNOWN INDICATION
     Route: 065
  5. RISEDRONATE SODIUM [Concomitant]
     Indication: DRUG USE FOR UNKNOWN INDICATION
     Route: 065
  6. ALLOPURINOL [Concomitant]
     Indication: DRUG USE FOR UNKNOWN INDICATION
     Route: 065
  7. PREDNISOLONE [Concomitant]
     Route: 065
  8. PREDNISOLONE [Concomitant]
     Route: 065
     Dates: start: 20090527

REACTIONS (2)
  - LOWER RESPIRATORY TRACT INFECTION [None]
  - TUMOUR FLARE [None]
